FAERS Safety Report 14994731 (Version 2)
Quarter: 2018Q2

REPORT INFORMATION
  Report Type: Spontaneous
  Country: BE (occurrence: BE)
  Receive Date: 20180611
  Receipt Date: 20180625
  Transmission Date: 20180711
  Serious: Yes (Death, Hospitalization, Other)
  Sender: FDA-Public Use
  Company Number: BE-INCYTE CORPORATION-2018IN005318

PATIENT

DRUGS (9)
  1. JAKAVI [Suspect]
     Active Substance: RUXOLITINIB
     Dosage: 5 MG, BID
     Route: 065
     Dates: start: 201606
  2. JAKAVI [Suspect]
     Active Substance: RUXOLITINIB
     Dosage: (10 OR 15 MG)
     Route: 065
     Dates: start: 201706
  3. REVLIMID [Concomitant]
     Active Substance: LENALIDOMIDE
     Indication: PRODUCT USED FOR UNKNOWN INDICATION
     Dosage: UNK
     Route: 065
     Dates: start: 201404
  4. MARCOUMAR [Concomitant]
     Active Substance: PHENPROCOUMON
     Indication: COAGULOPATHY
     Dosage: UNK
     Route: 065
     Dates: start: 2003
  5. PREDNISONE. [Concomitant]
     Active Substance: PREDNISONE
     Indication: PRODUCT USED FOR UNKNOWN INDICATION
     Dosage: UNK
     Route: 065
     Dates: start: 201404
  6. HYDREA [Concomitant]
     Active Substance: HYDROXYUREA
     Indication: PRODUCT USED FOR UNKNOWN INDICATION
     Dosage: UNK
     Route: 065
     Dates: start: 2003
  7. JAKAVI [Suspect]
     Active Substance: RUXOLITINIB
     Indication: MYELOFIBROSIS
     Dosage: 15 MG, BID
     Route: 065
     Dates: start: 20150612
  8. JAKAVI [Suspect]
     Active Substance: RUXOLITINIB
     Dosage: 10 MG, BID
     Route: 065
     Dates: start: 201708
  9. XAGRID [Concomitant]
     Active Substance: ANAGRELIDE HYDROCHLORIDE
     Indication: PRODUCT USED FOR UNKNOWN INDICATION
     Dosage: UNK
     Route: 065
     Dates: start: 2011

REACTIONS (11)
  - Anaemia [Unknown]
  - White blood cell count increased [Unknown]
  - Splenomegaly [Unknown]
  - Acute kidney injury [Fatal]
  - Abdominal wall haemorrhage [Unknown]
  - Empyema [Unknown]
  - Splenic rupture [Unknown]
  - Colitis [Fatal]
  - Arterial stenosis [Unknown]
  - Infection [Fatal]
  - Pneumonia [Unknown]

NARRATIVE: CASE EVENT DATE: 201706
